FAERS Safety Report 4899692-2 (Version None)
Quarter: 2006Q1

REPORT INFORMATION
  Report Type: 
  Country: None (occurrence: None)
  Receive Date: 20060202
  Receipt Date: 20050412
  Transmission Date: 20060701
  Serious: Yes (Hospitalization)
  Sender: FDA-Public Use
  Company Number: US-MERCK-0504USA01829

PATIENT
  Age: 61 Year
  Sex: Male

DRUGS (4)
  1. VIOXX [Suspect]
     Route: 048
  2. SKELAXIN [Concomitant]
     Route: 065
  3. DARVOCET-N 50 [Concomitant]
     Route: 065
  4. PEPCID [Concomitant]
     Route: 065

REACTIONS (2)
  - ARTERIOSCLEROSIS CORONARY ARTERY [None]
  - OSTEOARTHRITIS [None]
